FAERS Safety Report 25398058 (Version 1)
Quarter: 2025Q2

REPORT INFORMATION
  Report Type: Spontaneous
  Country: US (occurrence: US)
  Receive Date: 20250604
  Receipt Date: 20250604
  Transmission Date: 20250717
  Serious: No
  Sender: GALPHARM INTERNATIONAL
  Company Number: US-PERRIGO-25US004001

PATIENT
  Age: 19 Year
  Sex: Male
  Weight: 86.621 kg

DRUGS (1)
  1. MINOXIDIL [Suspect]
     Active Substance: MINOXIDIL
     Indication: Alopecia
     Route: 061
     Dates: start: 20250315, end: 20250315

REACTIONS (4)
  - Application site erythema [Recovered/Resolved]
  - Application site pain [Recovered/Resolved]
  - Product administered at inappropriate site [Recovered/Resolved]
  - Intentional product use issue [Recovered/Resolved]

NARRATIVE: CASE EVENT DATE: 20250315
